FAERS Safety Report 16827482 (Version 1)
Quarter: 2019Q3

REPORT INFORMATION
  Report Type: Spontaneous
  Country: FR (occurrence: FR)
  Receive Date: 20190919
  Receipt Date: 20190919
  Transmission Date: 20191005
  Serious: Yes (Hospitalization)
  Sender: FDA-Public Use
  Company Number: FR-RARE DISEASE THERAPEUTICS, INC.-2074651

PATIENT
  Age: 7 Year
  Sex: Female
  Weight: 20.6 kg

DRUGS (1)
  1. PURIXAN [Suspect]
     Active Substance: MERCAPTOPURINE
     Indication: LANGERHANS^ CELL HISTIOCYTOSIS
     Route: 048
     Dates: start: 201906, end: 20190817

REACTIONS (5)
  - Hyperlipasaemia [Recovering/Resolving]
  - Cholelithiasis [Recovering/Resolving]
  - Off label use [None]
  - Hepatocellular injury [Recovered/Resolved]
  - Gamma-glutamyltransferase increased [Recovering/Resolving]

NARRATIVE: CASE EVENT DATE: 201906
